FAERS Safety Report 9146976 (Version 2)
Quarter: 2013Q3

REPORT INFORMATION
  Report Type: Spontaneous
  Country: GB (occurrence: None)
  Receive Date: 20130222
  Receipt Date: 20130808
  Transmission Date: 20140515
  Serious: Yes (Death, Hospitalization)
  Sender: FDA-Public Use
  Company Number: SYM-2013-00462

PATIENT
  Age: 78 Year
  Sex: Male

DRUGS (10)
  1. FLUOROURACIL [Suspect]
     Indication: COLORECTAL CANCER METASTATIC
     Route: 040
     Dates: start: 20120814, end: 20120814
  2. LEUCOVORIN [Suspect]
     Indication: COLORECTAL CANCER METASTATIC
     Route: 041
     Dates: start: 20120814, end: 20120814
  3. IRINOTECAN [Suspect]
     Indication: COLORECTAL CANCER METASTATIC
     Route: 041
     Dates: start: 20120814, end: 20120814
  4. AFLIBERCEPT [Suspect]
     Indication: COLORECTAL CANCER METASTATIC
     Route: 041
     Dates: start: 20120814, end: 20120814
  5. TAMSULOSIN [Concomitant]
     Indication: COLORECTAL CANCER METASTATIC
  6. IBUPROFEN (IBUPROFEN) [Concomitant]
  7. FENTANYL (FENTANYL) [Concomitant]
  8. LANSOPRAZOLE (LANSOPRAZOLE) [Concomitant]
  9. TRAMADOL (TRAMADOL) [Concomitant]
  10. CYCLIZINE (CYCLIZINE) [Concomitant]

REACTIONS (3)
  - Anaemia [None]
  - Disease progression [None]
  - Colorectal cancer metastatic [None]
